FAERS Safety Report 4433307-2 (Version None)
Quarter: 2004Q3

REPORT INFORMATION
  Report Type: 
  Country: None (occurrence: None)
  Receive Date: 20040824
  Receipt Date: 20040811
  Transmission Date: 20050211
  Serious: Yes (Hospitalization)
  Sender: FDA-Public Use
  Company Number: 2004055639

PATIENT
  Age: 76 Year
  Sex: Female

DRUGS (7)
  1. ATORVASTATIN CALCIUM [Suspect]
     Indication: ACUTE MYOCARDIAL INFARCTION
     Dosage: 40 MG (40 MG 1 IN 1 D), ORAL
     Route: 048
     Dates: start: 20040703, end: 20040727
  2. ACETYLSALICYLIC ACID [Concomitant]
  3. LANSOPRAZOLE [Concomitant]
  4. BISOPROLOL FUMARATE [Concomitant]
  5. RAMIPRIL [Concomitant]
  6. BENDROFLUMETHIAZIDE [Concomitant]
  7. CLOPIDROGREL [Concomitant]
     Route: 048

REACTIONS (2)
  - HEPATITIS [None]
  - JAUNDICE CHOLESTATIC [None]
